FAERS Safety Report 8290065-1 (Version None)
Quarter: 2012Q1

REPORT INFORMATION
  Report Type: 
  Country: None (occurrence: None)
  Receive Date: 20120316
  Receipt Date: 20090929
  Transmission Date: 20120608
  Serious: Yes (Other)
  Sender: FDA-Public Use
  Company Number: PHEH2009US09520

PATIENT
  Age: 55 Year
  Sex: Male
  Weight: 108.4 kg

DRUGS (18)
  1. LIPITOR [Concomitant]
  2. SKELAXIN [Concomitant]
  3. LAMISIL [Concomitant]
  4. FLOMAX [Concomitant]
  5. VITAMINS NOS [Concomitant]
  6. ASPIRIN [Concomitant]
  7. TEKTURNA [Suspect]
     Indication: HYPERTENSION
     Dosage: 150 MG, QD, ORAL
     Route: 048
     Dates: start: 20080301, end: 20090801
  8. LOTREL [Concomitant]
  9. EXFORGE [Concomitant]
  10. COSAMIN DS (ASCORBIC ACID, CHONDROITIN SULFATE SODIUM, GLUCOSAMINE HYD [Concomitant]
  11. HYDROCHLOROTHIAZIDE [Concomitant]
  12. XYZAL [Concomitant]
  13. LOVAZA [Concomitant]
  14. LODRANE (BROMPHENIRAMINE MALEATE, PSEUDOEPHEDRINE HYDROCHLORIDE) [Concomitant]
  15. QUININE SULFATE [Concomitant]
  16. VIAGRA [Concomitant]
  17. ULTRAM [Concomitant]
  18. LODINE XL [Concomitant]

REACTIONS (2)
  - NEPHROLITHIASIS [None]
  - CONDITION AGGRAVATED [None]
